FAERS Safety Report 11289356 (Version 1)
Quarter: 2015Q3

REPORT INFORMATION
  Report Type: Spontaneous
  Country: GB (occurrence: GB)
  Receive Date: 20150721
  Receipt Date: 20150721
  Transmission Date: 20151125
  Serious: Yes (Hospitalization, Other)
  Sender: FDA-Public Use
  Company Number: GB-TEVA-578449ACC

PATIENT
  Age: 67 Year
  Sex: Male
  Weight: 72.5 kg

DRUGS (19)
  1. LEVOFLOXACIN. [Suspect]
     Active Substance: LEVOFLOXACIN
     Indication: INFECTIOUS PLEURAL EFFUSION
     Dosage: 1000 MILLIGRAM DAILY;
     Route: 042
     Dates: start: 20150531, end: 20150703
  2. CREON [Concomitant]
     Active Substance: PANCRELIPASE AMYLASE\PANCRELIPASE LIPASE\PANCRELIPASE PROTEASE
  3. LANSOPRAZOLE. [Concomitant]
     Active Substance: LANSOPRAZOLE
  4. LORAZEPAM. [Concomitant]
     Active Substance: LORAZEPAM
  5. SERTRALINE [Concomitant]
     Active Substance: SERTRALINE HYDROCHLORIDE
  6. NICOTINE. [Concomitant]
     Active Substance: NICOTINE
  7. SALBUTAMOL [Concomitant]
     Active Substance: ALBUTEROL
  8. TAMSULOSIN HYDROCHLORIDE. [Concomitant]
     Active Substance: TAMSULOSIN HYDROCHLORIDE
  9. ATORVASTATIN [Concomitant]
     Active Substance: ATORVASTATIN
  10. BISOPROLOL [Concomitant]
     Active Substance: BISOPROLOL
  11. ISOSORBIDE. [Concomitant]
     Active Substance: ISOSORBIDE
  12. ZOPICLONE [Concomitant]
     Active Substance: ZOPICLONE
  13. PARACETAMOL [Concomitant]
     Active Substance: ACETAMINOPHEN
  14. AMITRIPTYLINE [Concomitant]
     Active Substance: AMITRIPTYLINE
  15. ASPIRIN. [Concomitant]
     Active Substance: ASPIRIN
  16. OXYCODONE [Concomitant]
     Active Substance: OXYCODONE
  17. ANORO ELLIPTA [Concomitant]
     Active Substance: UMECLIDINIUM BROMIDE\VILANTEROL TRIFENATATE
  18. CARBOCISTEINE [Concomitant]
     Active Substance: CARBOCYSTEINE
  19. GLYCERYL TRINITRATE [Concomitant]
     Active Substance: NITROGLYCERIN

REACTIONS (3)
  - Delirium [Not Recovered/Not Resolved]
  - Confusional state [Not Recovered/Not Resolved]
  - Hallucination, visual [Recovered/Resolved]

NARRATIVE: CASE EVENT DATE: 20150618
